FAERS Safety Report 24648669 (Version 1)
Quarter: 2024Q4

REPORT INFORMATION
  Report Type: Spontaneous
  Country: US (occurrence: US)
  Receive Date: 20241121
  Receipt Date: 20241121
  Transmission Date: 20250114
  Serious: Yes (Hospitalization, Other)
  Sender: BRISTOL-MYERS SQUIBB COMPANY
  Company Number: US-BRISTOL-MYERS SQUIBB COMPANY-2024-177909

PATIENT
  Age: 74 Year
  Sex: Female
  Weight: 83.46 kg

DRUGS (8)
  1. THALOMID [Suspect]
     Active Substance: THALIDOMIDE
     Indication: Plasma cell myeloma
     Dosage: TAKE 2 CAPSULE ORALLY DAILY
     Route: 048
     Dates: start: 20241023
  2. ATENOLOL [Concomitant]
     Active Substance: ATENOLOL
  3. FAMOTIDINE [Concomitant]
     Active Substance: FAMOTIDINE
  4. ASPIRIN [Concomitant]
     Active Substance: ASPIRIN
  5. DEXAMETHASONE [Concomitant]
     Active Substance: DEXAMETHASONE
  6. ONDANSETRON [Concomitant]
     Active Substance: ONDANSETRON
  7. VALACYCLOVIR HYDROCHLORIDE [Concomitant]
     Active Substance: VALACYCLOVIR HYDROCHLORIDE
  8. PROFILE [OMEPRAZOLE] [Concomitant]
     Dosage: PROFILE COMPLETE

REACTIONS (3)
  - Large intestine perforation [Unknown]
  - Large intestine infection [Unknown]
  - Constipation [Unknown]

NARRATIVE: CASE EVENT DATE: 20241105
